FAERS Safety Report 10061333 (Version 2)
Quarter: 2014Q2

REPORT INFORMATION
  Report Type: Spontaneous
  Country: JP (occurrence: JP)
  Receive Date: 20140407
  Receipt Date: 20140417
  Transmission Date: 20141212
  Serious: Yes (Other)
  Sender: FDA-Public Use
  Company Number: JP-RANBAXY-2014RR-79840

PATIENT
  Age: 15 Year
  Sex: Female

DRUGS (1)
  1. CALONAL [Suspect]
     Indication: ALLERGY TEST
     Dosage: 100 MG
     Route: 048

REACTIONS (1)
  - Hypersensitivity vasculitis [Unknown]
